FAERS Safety Report 21341722 (Version 2)
Quarter: 2022Q4

REPORT INFORMATION
  Report Type: Spontaneous
  Country: US (occurrence: US)
  Receive Date: 20220916
  Receipt Date: 20221017
  Transmission Date: 20230112
  Serious: No
  Sender: FDA-Public Use
  Company Number: US-AMGEN-USASP2022152822

PATIENT
  Age: 79 Year
  Sex: Male

DRUGS (2)
  1. REPATHA [Suspect]
     Active Substance: EVOLOCUMAB
     Indication: Blood cholesterol increased
     Dosage: 140 MILLIGRAM, Q2WK
     Route: 058
  2. REPATHA [Suspect]
     Active Substance: EVOLOCUMAB
     Dosage: 140 MILLIGRAM, Q2WK
     Route: 058

REACTIONS (9)
  - Endovenous ablation [Unknown]
  - Injection site mass [Unknown]
  - Injection site scar [Not Recovered/Not Resolved]
  - Injection site pain [Unknown]
  - Injection site erythema [Unknown]
  - Injection site haemorrhage [Unknown]
  - Joint swelling [Unknown]
  - Inappropriate schedule of product administration [Unknown]
  - Device difficult to use [Unknown]

NARRATIVE: CASE EVENT DATE: 20210401
